APPROVED DRUG PRODUCT: TRIAMCINOLONE ACETONIDE
Active Ingredient: TRIAMCINOLONE ACETONIDE
Strength: 0.1%
Dosage Form/Route: OINTMENT;TOPICAL
Application: A205373 | Product #001 | TE Code: AT
Applicant: ENCUBE ETHICALS PRIVATE LTD
Approved: May 13, 2016 | RLD: No | RS: No | Type: RX